FAERS Safety Report 7050165-0 (Version None)
Quarter: 2010Q4

REPORT INFORMATION
  Report Type: 
  Country: None (occurrence: None)
  Receive Date: 20101018
  Receipt Date: 20101007
  Transmission Date: 20110411
  Serious: Yes (Other)
  Sender: FDA-Public Use
  Company Number: BR-ELI_LILLY_AND_COMPANY-BR201010001863

PATIENT
  Age: 64 Year
  Sex: Male

DRUGS (6)
  1. CIALIS [Suspect]
     Dosage: UNK, UNKNOWN
     Route: 065
  2. ATENOLOL [Concomitant]
     Dosage: 25 MG, 3/D
     Route: 065
  3. SINVASTATINA [Concomitant]
     Dosage: 40 MG, DAILY (1/D)
     Route: 065
  4. ASPIRIN [Concomitant]
     Dosage: 100 MG, DAILY (1/D)
     Route: 065
  5. LOSARTAN [Concomitant]
     Dosage: 50 MG, DAILY (1/D)
     Route: 065
  6. AMLODIPINE BESILATE [Concomitant]
     Dosage: 5 MG, DAILY (1/D)
     Route: 065

REACTIONS (2)
  - BACK PAIN [None]
  - VASCULAR GRAFT [None]
